FAERS Safety Report 10535175 (Version 1)
Quarter: 2014Q4

REPORT INFORMATION
  Report Type: Spontaneous
  Country: IT (occurrence: IT)
  Receive Date: 20141022
  Receipt Date: 20141022
  Transmission Date: 20150529
  Serious: Yes (Hospitalization)
  Sender: FDA-Public Use
  Company Number: PHHY2014IT133510

PATIENT
  Age: 59 Year
  Sex: Male

DRUGS (5)
  1. IMIPENEM+CILASTATIN SODIUM [Suspect]
     Active Substance: CILASTATIN SODIUM\IMIPENEM
     Indication: PRODUCT USED FOR UNKNOWN INDICATION
     Route: 065
  2. METFORMIN [Suspect]
     Active Substance: METFORMIN HYDROCHLORIDE
     Indication: DIABETES MELLITUS
     Route: 065
  3. ATENOLOL + CLORTALIDONE [Concomitant]
     Indication: HYPERTENSION
     Route: 065
  4. BECLOMETHASONE [Suspect]
     Active Substance: BECLOMETHASONE
     Indication: CROHN^S DISEASE
     Dosage: 5 MG, PER DAY
     Route: 065
  5. METRONIDAZOLE. [Concomitant]
     Active Substance: METRONIDAZOLE
     Indication: PRODUCT USED FOR UNKNOWN INDICATION
     Route: 065

REACTIONS (12)
  - Hypocalcaemia [Recovered/Resolved]
  - Blood osmolarity decreased [Recovered/Resolved]
  - Leukocytosis [Recovering/Resolving]
  - Seizure [Recovered/Resolved]
  - Diarrhoea [Recovered/Resolved]
  - Metabolic acidosis [Recovered/Resolved]
  - Abdominal pain lower [Recovered/Resolved]
  - Body temperature increased [Recovered/Resolved]
  - Hyponatraemia [Recovered/Resolved]
  - Polyuria [Recovered/Resolved]
  - Loss of consciousness [Recovered/Resolved]
  - Vomiting [Recovered/Resolved]
